FAERS Safety Report 20146684 (Version 3)
Quarter: 2021Q4

REPORT INFORMATION
  Report Type: Report from Study
  Country: JP (occurrence: JP)
  Receive Date: 20211203
  Receipt Date: 20211214
  Transmission Date: 20220303
  Serious: Yes (Hospitalization)
  Sender: FDA-Public Use
  Company Number: JP-ONO-2021JP029741

PATIENT
  Age: 75 Year
  Sex: Female
  Weight: 37.4 kg

DRUGS (13)
  1. ENCORAFENIB [Suspect]
     Active Substance: ENCORAFENIB
     Indication: Anaplastic thyroid cancer
     Dosage: 450 MG (6CAP), EVERYDAY, FROM 22-NOV-2021, WITHDRAWAL FROM NIGHTTIME ORAL ADMINISTRATION
     Route: 048
     Dates: start: 20211118, end: 20211122
  2. ENCORAFENIB [Suspect]
     Active Substance: ENCORAFENIB
     Dosage: 300 MG (4CAP), EVERYDAY
     Route: 048
     Dates: start: 20211207
  3. BINIMETINIB [Suspect]
     Active Substance: BINIMETINIB
     Indication: Anaplastic thyroid cancer
     Dosage: 45 MG (3 TABLETS), Q12H, FROM 22-NOV-2021, WITHDRAWAL FROM NIGHTTIME ORAL ADMINISTRATION
     Route: 048
     Dates: start: 20211118, end: 20211122
  4. BINIMETINIB [Suspect]
     Active Substance: BINIMETINIB
     Dosage: 30 MG (3 TABLETS), Q12H
     Route: 048
     Dates: start: 20211207
  5. LEVOTHYROXINE SODIUM [Concomitant]
     Active Substance: LEVOTHYROXINE SODIUM
     Indication: Thyreostatic therapy
     Dosage: 87.5 ?G, EVERYDAY
     Route: 048
     Dates: start: 202106
  6. OLMESARTAN MEDOXOMIL [Concomitant]
     Active Substance: OLMESARTAN MEDOXOMIL
     Indication: Hypertension
     Dosage: 20 MG, EVERYDAY
     Route: 048
     Dates: start: 20211025
  7. COSOPT [Concomitant]
     Active Substance: DORZOLAMIDE HYDROCHLORIDE\TIMOLOL MALEATE
     Indication: Glaucoma
     Dosage: 1 DROP, Q12H
     Route: 047
     Dates: start: 2016
  8. BRIMONIDINE TARTRATE [Concomitant]
     Active Substance: BRIMONIDINE TARTRATE
     Indication: Glaucoma
     Dosage: 1 DROP, Q12H
     Route: 047
     Dates: start: 2016
  9. BIMATOPROST [Concomitant]
     Active Substance: BIMATOPROST
     Indication: Glaucoma
     Dosage: 1 DROP, Q12H
     Route: 047
     Dates: start: 2016
  10. CHONDROITIN SULFATE (BOVINE) [Concomitant]
     Active Substance: CHONDROITIN SULFATE (BOVINE)
     Indication: Dry skin
     Dosage: APPROPRIATE AMOUNT, Q8H
     Route: 061
  11. METOCLOPRAMIDE [Concomitant]
     Active Substance: METOCLOPRAMIDE
     Indication: Vomiting
     Dosage: 5 MG, WHEN NAUSEA
     Route: 048
     Dates: start: 20211119
  12. METOCLOPRAMIDE [Concomitant]
     Active Substance: METOCLOPRAMIDE
     Indication: Decreased appetite
  13. METOCLOPRAMIDE [Concomitant]
     Active Substance: METOCLOPRAMIDE
     Indication: Nausea

REACTIONS (1)
  - Duodenal ulcer [Recovered/Resolved]

NARRATIVE: CASE EVENT DATE: 20211123
